FAERS Safety Report 19444100 (Version 2)
Quarter: 2022Q1

REPORT INFORMATION
  Report Type: Spontaneous
  Country: AT (occurrence: AT)
  Receive Date: 20210621
  Receipt Date: 20220122
  Transmission Date: 20220424
  Serious: Yes (Death, Other)
  Sender: FDA-Public Use
  Company Number: AT-NOVARTISPH-NVSC2021AT137331

PATIENT
  Sex: Female

DRUGS (14)
  1. ANASTROZOLE [Suspect]
     Active Substance: ANASTROZOLE
     Indication: Breast cancer metastatic
     Dosage: UNK
     Route: 065
     Dates: start: 201911
  2. FULVESTRANT [Suspect]
     Active Substance: FULVESTRANT
     Indication: Breast cancer metastatic
     Dosage: UNK
     Route: 065
     Dates: start: 202012, end: 202104
  3. RIBOCICLIB [Suspect]
     Active Substance: RIBOCICLIB
     Indication: Breast cancer metastatic
     Dosage: 200 MG (3-0-0 DAYS 1-21)
     Route: 065
     Dates: start: 201911
  4. PIQRAY [Suspect]
     Active Substance: ALPELISIB
     Indication: Breast cancer metastatic
     Dosage: 150 MG (0-2-0)
     Route: 065
     Dates: start: 202012, end: 202104
  5. CAPECITABINE [Suspect]
     Active Substance: CAPECITABINE
     Indication: Breast cancer metastatic
     Dosage: UNK
     Route: 065
  6. ZOLADEX [Suspect]
     Active Substance: GOSERELIN ACETATE
     Indication: Breast cancer metastatic
     Dosage: UNK
     Route: 065
     Dates: start: 201911, end: 202011
  7. ZOLADEX [Suspect]
     Active Substance: GOSERELIN ACETATE
     Dosage: UNK (CONTINUED)
     Route: 065
  8. GOSERELIN [Concomitant]
     Active Substance: GOSERELIN
     Indication: Breast cancer metastatic
     Dosage: UNK
     Route: 065
     Dates: start: 201911
  9. TENOFOVIR [Concomitant]
     Active Substance: TENOFOVIR
     Indication: Product used for unknown indication
     Dosage: UNK
     Route: 065
     Dates: start: 201911
  10. DENOSUMAB [Concomitant]
     Active Substance: DENOSUMAB
     Indication: Product used for unknown indication
     Dosage: UNK
     Route: 065
     Dates: start: 202007
  11. VITAMINS WITH MINERALS [Concomitant]
     Active Substance: MINERALS\VITAMINS
     Indication: Product used for unknown indication
     Dosage: UNK
     Route: 065
     Dates: start: 202007
  12. FUROSEMIDE\SPIRONOLACTONE [Concomitant]
     Active Substance: FUROSEMIDE\SPIRONOLACTONE
     Indication: Product used for unknown indication
     Dosage: UNK UNK, QD (20/50 MG)
     Route: 065
     Dates: start: 202012
  13. BEVACIZUMAB [Concomitant]
     Active Substance: BEVACIZUMAB
     Indication: Product used for unknown indication
     Dosage: UNK
     Route: 065
  14. VIREAD [Concomitant]
     Active Substance: TENOFOVIR DISOPROXIL FUMARATE
     Indication: Chronic hepatitis B
     Dosage: UNK
     Route: 065

REACTIONS (10)
  - Metastasis [Fatal]
  - Confusional state [Fatal]
  - Metastases to bone [Unknown]
  - Hepatic cirrhosis [Unknown]
  - Ascites [Unknown]
  - Metastases to liver [Unknown]
  - Jaundice [Unknown]
  - Liver function test increased [Unknown]
  - General physical health deterioration [Unknown]
  - Blood glucose fluctuation [Unknown]

NARRATIVE: CASE EVENT DATE: 20200701
